FAERS Safety Report 19021825 (Version 1)
Quarter: 2021Q1

REPORT INFORMATION
  Report Type: Spontaneous
  Country: NL (occurrence: NL)
  Receive Date: 20210317
  Receipt Date: 20210317
  Transmission Date: 20210420
  Serious: Yes (Other)
  Sender: FDA-Public Use
  Company Number: NL-ASTRAZENECA-2021A122129

PATIENT
  Age: 33 Year
  Sex: Female

DRUGS (6)
  1. QUETIAPINE. [Suspect]
     Active Substance: QUETIAPINE
     Indication: SLEEP DISORDER
     Route: 065
     Dates: start: 202101, end: 20210218
  2. COLECALCIFEROL [Concomitant]
     Active Substance: CHOLECALCIFEROL
     Dosage: CAPSULE, 5600 UNITS
  3. METOPROLOL. [Concomitant]
     Active Substance: METOPROLOL
     Dosage: TABLET MET GEREGULEERDE AFGIFTE, 50 MG (MILLIGRAM)
  4. FLUTICASON?PROPIONAAT [Concomitant]
     Dosage: NEUSSPRAY, 50 ??G/DOSE (MICROGRAM PER DOSE)
  5. ETHINYLESTRADIOL [Concomitant]
     Active Substance: ETHINYL ESTRADIOL
     Dosage: TABLET, 30/150 ??G (MICROGRAM)
  6. BUPROPION. [Concomitant]
     Active Substance: BUPROPION
     Dosage: REGULATED RELEASE TABLET 300 MG (MILLIGRAM)

REACTIONS (1)
  - Deep vein thrombosis [Not Recovered/Not Resolved]

NARRATIVE: CASE EVENT DATE: 20210214
